FAERS Safety Report 10311341 (Version 2)
Quarter: 2014Q3

REPORT INFORMATION
  Report Type: Spontaneous
  Country: DE (occurrence: DE)
  Receive Date: 20140717
  Receipt Date: 20140717
  Transmission Date: 20150326
  Serious: Yes (Death)
  Sender: FDA-Public Use
  Company Number: DE-EISAI INC-E2007-01775-SPO-DE

PATIENT
  Age: 49 Year
  Sex: Male
  Weight: 72 kg

DRUGS (6)
  1. PREGABALIN. [Concomitant]
     Active Substance: PREGABALIN
     Indication: PRODUCT USED FOR UNKNOWN INDICATION
     Dosage: 300 MG
     Route: 048
     Dates: start: 20120620, end: 20131210
  2. FYCOMPA [Suspect]
     Active Substance: PERAMPANEL
     Indication: EPILEPSY
     Route: 048
     Dates: start: 20120906
  3. FYCOMPA [Suspect]
     Active Substance: PERAMPANEL
     Dosage: UNKNOWN - UPTITRATION
     Route: 048
  4. ONCOLOGICAL MEDICATION [Concomitant]
     Indication: CHEMOTHERAPY
     Dosage: UNKNOWN
  5. FYCOMPA [Suspect]
     Active Substance: PERAMPANEL
     Route: 048
     Dates: end: 20131210
  6. LEVETIRACETAM. [Concomitant]
     Active Substance: LEVETIRACETAM
     Indication: PRODUCT USED FOR UNKNOWN INDICATION
     Dosage: 3000 MG
     Route: 048
     Dates: start: 20120602, end: 20131210

REACTIONS (1)
  - Malignant neoplasm progression [Fatal]

NARRATIVE: CASE EVENT DATE: 20131216
